FAERS Safety Report 12050984 (Version 1)
Quarter: 2016Q1

REPORT INFORMATION
  Report Type: Spontaneous
  Country: US (occurrence: None)
  Receive Date: 20160208
  Receipt Date: 20160208
  Transmission Date: 20160526
  Serious: Yes (Life-Threatening, Hospitalization, Disabling)
  Sender: FDA-Public Use
  Company Number: None

PATIENT
  Age: 77 Year
  Sex: Male
  Weight: 66.23 kg

DRUGS (17)
  1. PAXIL [Concomitant]
     Active Substance: PAROXETINE HYDROCHLORIDE
  2. STOOL SOFTENER [Concomitant]
     Active Substance: DOCUSATE CALCIUM
  3. AMIODARONE 200 MG [Suspect]
     Active Substance: AMIODARONE
     Indication: ATRIAL FIBRILLATION
     Dosage: 1 PILL TWICE DAILY TAKEN BY MOUTH
     Route: 048
     Dates: start: 20150723, end: 20160207
  4. COMPAZINE [Concomitant]
     Active Substance: PROCHLORPERAZINE MALEATE
  5. MULTI VITAMIN [Concomitant]
     Active Substance: VITAMINS
  6. METROPOL TARTRATE [Concomitant]
  7. ISOSORBIDE. [Concomitant]
     Active Substance: ISOSORBIDE
  8. HUMULOG [Concomitant]
  9. VITAMIN D [Concomitant]
     Active Substance: CHOLECALCIFEROL
  10. ZOFRAN [Concomitant]
     Active Substance: ONDANSETRON HYDROCHLORIDE
  11. WARFARIN [Concomitant]
     Active Substance: WARFARIN
  12. NORCO [Concomitant]
     Active Substance: ACETAMINOPHEN\HYDROCODONE BITARTRATE
  13. LANTUS [Concomitant]
     Active Substance: INSULIN GLARGINE
  14. OXYGEN. [Concomitant]
     Active Substance: OXYGEN
  15. MUCINEX [Concomitant]
     Active Substance: GUAIFENESIN
  16. MAGNESIUM [Concomitant]
     Active Substance: MAGNESIUM
  17. FOLIC ACID. [Concomitant]
     Active Substance: FOLIC ACID

REACTIONS (6)
  - Acute respiratory distress syndrome [None]
  - Pneumonia [None]
  - Pulmonary fibrosis [None]
  - Toxicity to various agents [None]
  - Fall [None]
  - Vomiting [None]
